FAERS Safety Report 9989177 (Version 2)
Quarter: 2014Q2

REPORT INFORMATION
  Report Type: Report from Study
  Country: CA (occurrence: CA)
  Receive Date: 20140310
  Receipt Date: 20140421
  Transmission Date: 20141212
  Serious: Yes (Hospitalization)
  Sender: FDA-Public Use
  Company Number: CA-JNJFOC-20140300976

PATIENT
  Age: 13 Year
  Sex: Male
  Weight: 40.9 kg

DRUGS (9)
  1. REMICADE [Suspect]
     Indication: CROHN^S DISEASE
     Route: 042
     Dates: start: 20140214
  2. REMICADE [Suspect]
     Indication: CROHN^S DISEASE
     Route: 042
     Dates: start: 20131223
  3. REMICADE [Suspect]
     Indication: CROHN^S DISEASE
     Route: 042
     Dates: start: 20130921
  4. ADVAIR [Concomitant]
     Route: 055
  5. ADVAIR [Concomitant]
     Route: 055
  6. VENTOLIN [Concomitant]
     Route: 055
  7. PROZAC [Concomitant]
     Route: 048
  8. FLUOXETINE [Concomitant]
     Route: 048
  9. MULTIVITAMINS [Concomitant]
     Route: 065

REACTIONS (5)
  - Crohn^s disease [Recovered/Resolved]
  - Viral upper respiratory tract infection [Unknown]
  - Clostridium difficile colitis [Recovered/Resolved]
  - Asthma [Unknown]
  - Weight decreased [Unknown]
